FAERS Safety Report 4610863-2 (Version None)
Quarter: 2005Q1

REPORT INFORMATION
  Report Type: 
  Country: None (occurrence: None)
  Receive Date: 20050301
  Receipt Date: 20041215
  Transmission Date: 20050727
  Serious: No
  Sender: FDA-Public Use
  Company Number: MPS1-10312

PATIENT
  Age: 29 Year
  Sex: Male
  Weight: 65 kg

DRUGS (2)
  1. ALDURAZYME [Suspect]
     Dosage: 0.58 MG/KG QWK IV
     Route: 042
     Dates: start: 20030630
  2. ALDURAZYME [Suspect]
     Dosage: 0.58 MG/KG QWK IV
     Route: 042
     Dates: start: 19980327, end: 20030601

REACTIONS (1)
  - CATHETER RELATED INFECTION [None]
